FAERS Safety Report 5424688-1 (Version None)
Quarter: 2007Q3

REPORT INFORMATION
  Report Type: 
  Country: None (occurrence: None)
  Receive Date: 20070824
  Receipt Date: 20070820
  Transmission Date: 20080115
  Serious: Yes (Other)
  Sender: FDA-Public Use
  Company Number: US-BAYER-200712816BWH

PATIENT
  Sex: Male

DRUGS (1)
  1. LEVITRA [Suspect]
     Indication: ERECTILE DYSFUNCTION
     Dosage: TOTAL DAILY DOSE: 5 MG  UNIT DOSE: 20 MG
     Route: 048

REACTIONS (3)
  - PENILE PAIN [None]
  - PENIS DISORDER [None]
  - VASCULAR RUPTURE [None]
